FAERS Safety Report 22015247 (Version 1)
Quarter: 2023Q1

REPORT INFORMATION
  Report Type: Spontaneous
  Country: US (occurrence: US)
  Receive Date: 20230221
  Receipt Date: 20230221
  Transmission Date: 20230417
  Serious: No
  Sender: FDA-Public Use
  Company Number: US-SA-SAC20230217000187

PATIENT
  Age: 45 Year
  Sex: Female

DRUGS (4)
  1. DUPIXENT [Suspect]
     Active Substance: DUPILUMAB
     Indication: Dermatitis atopic
     Dosage: 300 MG, QOW
     Route: 058
     Dates: start: 20220709
  2. ALDACTONE [Concomitant]
     Active Substance: SPIRONOLACTONE
  3. CLINDAMYCIN [Concomitant]
     Active Substance: CLINDAMYCIN
  4. TRETINOIN [Concomitant]
     Active Substance: TRETINOIN

REACTIONS (1)
  - Dermatitis atopic [Unknown]
